FAERS Safety Report 16568895 (Version 1)
Quarter: 2019Q3

REPORT INFORMATION
  Report Type: Spontaneous
  Country: GB (occurrence: GB)
  Receive Date: 20190713
  Receipt Date: 20190713
  Transmission Date: 20191004
  Serious: Yes (Other)
  Sender: FDA-Public Use
  Company Number: GB-TEVA-2019-GB-1075657

PATIENT
  Age: 29 Year
  Sex: Male
  Weight: 70 kg

DRUGS (1)
  1. ORPHENADRINE [Suspect]
     Active Substance: ORPHENADRINE
     Dosage: 50MG/5ML
     Route: 048
     Dates: start: 20190614

REACTIONS (3)
  - Vomiting [Recovered/Resolved]
  - Hypersensitivity [Unknown]
  - Blepharospasm [Unknown]

NARRATIVE: CASE EVENT DATE: 20190614
